FAERS Safety Report 17132964 (Version 1)
Quarter: 2019Q4

REPORT INFORMATION
  Report Type: Spontaneous
  Country: FR (occurrence: FR)
  Receive Date: 20191210
  Receipt Date: 20191210
  Transmission Date: 20200122
  Serious: Yes (Life-Threatening)
  Sender: FDA-Public Use
  Company Number: FR-TEVA-2019-FR-1148191

PATIENT
  Age: 57 Year
  Sex: Male
  Weight: 140 kg

DRUGS (2)
  1. MONTELUKAST SODIQUE [Suspect]
     Active Substance: MONTELUKAST SODIUM
     Indication: DYSPNOEA
     Dosage: 1 DOSAGE FORMS PER TOTAL
     Route: 048
     Dates: start: 20191029, end: 20191029
  2. AUGMENTIN [Suspect]
     Active Substance: AMOXICILLIN\CLAVULANATE POTASSIUM
     Indication: BRONCHITIS
     Dosage: 1 GRAM, TOTAL
     Route: 048
     Dates: start: 20191029, end: 20191029

REACTIONS (1)
  - Anaphylactic shock [Recovered/Resolved]

NARRATIVE: CASE EVENT DATE: 20191029
